FAERS Safety Report 5498326-6 (Version None)
Quarter: 2007Q4

REPORT INFORMATION
  Report Type: 
  Country: None (occurrence: None)
  Receive Date: 20071025
  Receipt Date: 20070501
  Transmission Date: 20080405
  Serious: Yes (Other)
  Sender: FDA-Public Use
  Company Number: A0649462A

PATIENT
  Age: 64 Year
  Sex: Female

DRUGS (3)
  1. ADVAIR DISKUS 100/50 [Suspect]
     Indication: PNEUMONIA
     Dosage: 1PUFF TWICE PER DAY
     Route: 055
     Dates: start: 20070328
  2. AVELOX [Concomitant]
  3. XOPENEX [Concomitant]

REACTIONS (3)
  - CANDIDIASIS [None]
  - ORAL PAIN [None]
  - PNEUMONIA [None]
